FAERS Safety Report 5932214-3 (Version None)
Quarter: 2008Q4

REPORT INFORMATION
  Report Type: 
  Country: None (occurrence: None)
  Receive Date: 20081028
  Receipt Date: 20081017
  Transmission Date: 20090506
  Serious: Yes (Hospitalization)
  Sender: FDA-Public Use
  Company Number: FR-JNJFOC-20081004914

PATIENT
  Sex: Female
  Weight: 80.5 kg

DRUGS (9)
  1. DURAGESIC-100 [Suspect]
     Indication: PAIN IN EXTREMITY
     Route: 062
  2. ATHYMIL [Suspect]
     Indication: DRUG USE FOR UNKNOWN INDICATION
     Route: 048
  3. CORDIPATCH [Suspect]
     Indication: ANGINA PECTORIS
     Route: 062
  4. PREVISCAN [Concomitant]
     Indication: PHLEBITIS
     Route: 048
  5. FUROSEMIDE [Concomitant]
     Route: 048
  6. COVERSYL [Concomitant]
     Route: 048
  7. FENOFIBRATE [Concomitant]
     Route: 048
  8. RIVOTRIL [Concomitant]
     Route: 048
  9. TIMOPTIC [Concomitant]

REACTIONS (4)
  - BILE DUCT STONE [None]
  - GENERAL PHYSICAL CONDITION ABNORMAL [None]
  - PYREXIA [None]
  - SUBILEUS [None]
